FAERS Safety Report 5648443-2 (Version None)
Quarter: 2008Q1

REPORT INFORMATION
  Report Type: 
  Country: None (occurrence: None)
  Receive Date: 20080304
  Receipt Date: 20080225
  Transmission Date: 20080703
  Serious: Yes (Hospitalization, Other)
  Sender: FDA-Public Use
  Company Number: PHRM2007FR02855

PATIENT
  Age: 51 Year
  Sex: Female

DRUGS (3)
  1. LEPONEX [Suspect]
     Indication: SCHIZOPHRENIA
     Dosage: 500 MG/DAY
     Route: 048
     Dates: start: 19950801, end: 20071101
  2. LEXOMIL [Concomitant]
     Route: 048
  3. DEPAKENE [Concomitant]
     Indication: EPILEPSY
     Dosage: 1 G/DAY
     Route: 048
     Dates: end: 20071101

REACTIONS (5)
  - ABDOMINAL STRANGULATED HERNIA [None]
  - EPILEPSY [None]
  - LYMPHOMA [None]
  - RED BLOOD CELL ABNORMALITY [None]
  - STRANGULATED HERNIA REPAIR [None]
